FAERS Safety Report 6985196-X (Version None)
Quarter: 2010Q3

REPORT INFORMATION
  Report Type: 
  Country: None (occurrence: None)
  Receive Date: 20100914
  Receipt Date: 20100914
  Transmission Date: 20110219
  Serious: No
  Sender: FDA-Public Use
  Company Number: None

PATIENT
  Age: 48 Year
  Sex: Female

DRUGS (1)
  1. BACTRIM [Suspect]
     Dates: start: 20090325, end: 20090415

REACTIONS (16)
  - ABDOMINAL DISCOMFORT [None]
  - ALANINE AMINOTRANSFERASE INCREASED [None]
  - ASPARTATE AMINOTRANSFERASE INCREASED [None]
  - BLOOD ALKALINE PHOSPHATASE INCREASED [None]
  - BLOOD BILIRUBIN INCREASED [None]
  - CHROMATURIA [None]
  - DECREASED APPETITE [None]
  - FAECES PALE [None]
  - JAUNDICE [None]
  - LEUKOCYTOSIS [None]
  - LIVER DISORDER [None]
  - MALAISE [None]
  - MYALGIA [None]
  - PRURITUS [None]
  - PYREXIA [None]
  - WEIGHT DECREASED [None]
